FAERS Safety Report 13672436 (Version 2)
Quarter: 2017Q3

REPORT INFORMATION
  Report Type: Report from Study
  Country: TW (occurrence: TW)
  Receive Date: 20170620
  Receipt Date: 20170720
  Transmission Date: 20171127
  Serious: Yes (Hospitalization)
  Sender: FDA-Public Use
  Company Number: TW-AMGEN-TWNNI2017059319

PATIENT
  Age: 52 Year
  Sex: Female

DRUGS (8)
  1. SOLACON [Concomitant]
     Dosage: 200 MG, BID
     Route: 048
     Dates: start: 20170104
  2. ALLEGRA [Concomitant]
     Active Substance: FEXOFENADINE HYDROCHLORIDE
     Dosage: 60 MG, BID
     Route: 048
     Dates: start: 20170223, end: 20170316
  3. BLINATUMOMAB [Suspect]
     Active Substance: BLINATUMOMAB
     Indication: B PRECURSOR TYPE ACUTE LEUKAEMIA
     Dosage: 56 MUG,  (IN NS 250 ML IVD 48 HR WITH PUMP (5 ML/HR FOR TOTAL 240 ML)
     Route: 042
     Dates: start: 20170202, end: 20170225
  4. PREGABALIN. [Concomitant]
     Active Substance: PREGABALIN
     Dosage: 75 MG, BID
     Route: 048
     Dates: start: 20170104, end: 20170302
  5. OXYCODONE [Concomitant]
     Active Substance: OXYCODONE
     Dosage: 20 UNK, Q12H
     Route: 048
     Dates: start: 20170104
  6. ACETAMINOPHEN. [Concomitant]
     Active Substance: ACETAMINOPHEN
     Dosage: 500 MG, AS NECESSARY
     Route: 048
     Dates: start: 20170218
  7. PROPRANOLOL [Concomitant]
     Active Substance: PROPRANOLOL HYDROCHLORIDE
     Dosage: 10 MG, TID
     Route: 048
     Dates: start: 20170104
  8. IMIPRAMINE [Concomitant]
     Active Substance: IMIPRAMINE
     Dosage: 10 MG, BID
     Route: 048
     Dates: start: 20161201

REACTIONS (2)
  - Dyskinesia [Not Recovered/Not Resolved]
  - Delirium [Recovered/Resolved]

NARRATIVE: CASE EVENT DATE: 20170225
